FAERS Safety Report 5243753-5 (Version None)
Quarter: 2007Q1

REPORT INFORMATION
  Report Type: 
  Country: None (occurrence: None)
  Receive Date: 20070213
  Receipt Date: 20070131
  Transmission Date: 20070707
  Serious: Yes (Hospitalization)
  Sender: FDA-Public Use
  Company Number: AE07-001

PATIENT
  Age: 9 Year
  Sex: Male

DRUGS (1)
  1. COMPOUNDED PRESCRIPTION - ALLERGENIC EXTRACTS [Suspect]
     Indication: ALLERGY TO PLANTS
     Dosage: 0.25 CC SUBCUTANEOUS
     Route: 058
     Dates: start: 20060901, end: 20070127

REACTIONS (2)
  - ANAPHYLACTIC REACTION [None]
  - TYPE IV HYPERSENSITIVITY REACTION [None]
